FAERS Safety Report 6728019-6 (Version None)
Quarter: 2010Q2

REPORT INFORMATION
  Report Type: 
  Country: None (occurrence: None)
  Receive Date: 20100517
  Receipt Date: 20100512
  Transmission Date: 20101027
  Serious: Yes (Death, Other)
  Sender: FDA-Public Use
  Company Number: US-MERCK-0703USA05025

PATIENT
  Age: 40 Year
  Sex: Female
  Weight: 104 kg

DRUGS (6)
  1. CANCIDAS [Suspect]
     Indication: FUNGAL INFECTION
     Route: 042
     Dates: start: 20070223, end: 20070228
  2. CANCIDAS [Suspect]
     Route: 042
     Dates: start: 20070222, end: 20070222
  3. CANCIDAS [Suspect]
     Indication: ENTEROCOCCAL INFECTION
     Route: 042
     Dates: start: 20070223, end: 20070228
  4. CANCIDAS [Suspect]
     Route: 042
     Dates: start: 20070222, end: 20070222
  5. ZOSYN [Suspect]
     Indication: ENTEROBACTER INFECTION
     Route: 042
     Dates: start: 20070208, end: 20070226
  6. ZOSYN [Suspect]
     Indication: ENTEROCOCCAL INFECTION
     Route: 042
     Dates: start: 20070208, end: 20070226

REACTIONS (2)
  - DEATH [None]
  - TOXIC EPIDERMAL NECROLYSIS [None]
